FAERS Safety Report 9309644 (Version 1)
Quarter: 2013Q2

REPORT INFORMATION
  Report Type: Spontaneous
  Country: US (occurrence: US)
  Receive Date: 20130525
  Receipt Date: 20130525
  Transmission Date: 20140414
  Serious: No
  Sender: FDA-Public Use
  Company Number: US-BRISTOL-MYERS SQUIBB COMPANY-18586032

PATIENT
  Age: 47 Year
  Sex: Male
  Weight: 113.38 kg

DRUGS (3)
  1. BYDUREON 2MG VIAL + SYRINGE [Suspect]
     Indication: TYPE 2 DIABETES MELLITUS
     Route: 058
     Dates: start: 20130119
  2. METFORMIN HCL [Concomitant]
     Indication: TYPE 2 DIABETES MELLITUS
     Route: 048
  3. VICTOZA [Concomitant]
     Indication: TYPE 2 DIABETES MELLITUS
     Route: 058
     Dates: end: 20130118

REACTIONS (4)
  - Blood glucose increased [Not Recovered/Not Resolved]
  - Underdose [Not Recovered/Not Resolved]
  - Wrong technique in drug usage process [Not Recovered/Not Resolved]
  - Injection site haemorrhage [Not Recovered/Not Resolved]
